FAERS Safety Report 8266687-0 (Version None)
Quarter: 2012Q2

REPORT INFORMATION
  Report Type: 
  Country: None (occurrence: None)
  Receive Date: 20120408
  Receipt Date: 20120327
  Transmission Date: 20120825
  Serious: Yes (Hospitalization)
  Sender: FDA-Public Use
  Company Number: US-BRISTOL-MYERS SQUIBB COMPANY-16392755

PATIENT
  Age: 64 Year
  Sex: Female

DRUGS (2)
  1. REYATAZ [Suspect]
  2. TENOFOVIR DISOPROXIL FUMARATE [Concomitant]

REACTIONS (1)
  - PNEUMONIA [None]
